FAERS Safety Report 9101875 (Version 1)
Quarter: 2013Q1

REPORT INFORMATION
  Report Type: Spontaneous
  Country: JP (occurrence: JP)
  Receive Date: 20130218
  Receipt Date: 20130218
  Transmission Date: 20140127
  Serious: Yes (Hospitalization, Other)
  Sender: FDA-Public Use
  Company Number: JP-ASTELLAS-2012JP012040

PATIENT
  Age: 77 Year
  Sex: Male
  Weight: 51.8 kg

DRUGS (7)
  1. BETANIS [Suspect]
     Indication: HYPERTONIC BLADDER
     Dosage: 50 MG, UID/QD
     Route: 048
     Dates: start: 20121110, end: 20121210
  2. JANUVIA [Concomitant]
     Dosage: UNK
     Route: 048
  3. URIEF [Concomitant]
     Indication: URINARY RETENTION
     Dosage: 4 MG, BID
     Route: 048
     Dates: start: 20121210
  4. LIPITOR [Concomitant]
     Indication: HYPERCHOLESTEROLAEMIA
     Dosage: 5 MG, UID/QD
     Route: 048
  5. AMARYL [Concomitant]
     Indication: DIABETES MELLITUS
     Dosage: 2 MG, UID/QD
     Route: 048
  6. NESINA [Concomitant]
     Indication: DIABETES MELLITUS
     Dosage: 25 MG, UID/QD
     Route: 048
  7. BASEN [Concomitant]
     Indication: DIABETES MELLITUS
     Dosage: 0.2 MG, TID
     Route: 048

REACTIONS (3)
  - Urinary retention [Recovered/Resolved]
  - Tremor [Recovered/Resolved]
  - Prostatitis [Recovered/Resolved]
